FAERS Safety Report 15478830 (Version 1)
Quarter: 2018Q4

REPORT INFORMATION
  Report Type: Spontaneous
  Country: US (occurrence: US)
  Receive Date: 20181009
  Receipt Date: 20181009
  Transmission Date: 20190205
  Serious: Yes (Life-Threatening, Disabling, Other)
  Sender: FDA-Public Use
  Company Number: US-PFIZER INC-2018401624

PATIENT
  Age: 50 Year
  Sex: Male

DRUGS (3)
  1. PREDNISONE. [Suspect]
     Active Substance: PREDNISONE
     Dosage: UNK
  2. SOLU-MEDROL [Suspect]
     Active Substance: METHYLPREDNISOLONE SODIUM SUCCINATE
     Dosage: UNK
  3. NPLATE [Suspect]
     Active Substance: ROMIPLOSTIM
     Indication: IMMUNE THROMBOCYTOPENIC PURPURA
     Dosage: 750 UG, 1X/DAY
     Route: 065
     Dates: start: 2012

REACTIONS (12)
  - Apparent death [Unknown]
  - Thrombocytopenia [Unknown]
  - Intervertebral disc injury [Unknown]
  - Sleep apnoea syndrome [Unknown]
  - Immunosuppression [Unknown]
  - Pathological fracture [Unknown]
  - Intervertebral disc protrusion [Unknown]
  - Bone disorder [Unknown]
  - Avulsion fracture [Unknown]
  - Condition aggravated [Unknown]
  - General physical health deterioration [Unknown]
  - Meniscus injury [Unknown]

NARRATIVE: CASE EVENT DATE: 2012
